FAERS Safety Report 8289062-1 (Version None)
Quarter: 2012Q1

REPORT INFORMATION
  Report Type: 
  Country: None (occurrence: None)
  Receive Date: 20120322
  Receipt Date: 20120116
  Transmission Date: 20120608
  Serious: Yes (Hospitalization)
  Sender: FDA-Public Use
  Company Number: UTC-014707

PATIENT
  Age: 38 Year
  Sex: Male
  Weight: 126.8 kg

DRUGS (1)
  1. TYVASO [Suspect]
     Indication: PULMONARY ARTERIAL HYPERTENSION
     Dosage: 18-54 MICROGRAMS (4 IN 1 D), INHALATION
     Route: 055
     Dates: start: 20111201

REACTIONS (3)
  - VOMITING [None]
  - CEREBROVASCULAR ACCIDENT [None]
  - NAUSEA [None]
